FAERS Safety Report 10291571 (Version 1)
Quarter: 2014Q3

REPORT INFORMATION
  Report Type: Spontaneous
  Country: US (occurrence: US)
  Receive Date: 20140710
  Receipt Date: 20140710
  Transmission Date: 20150326
  Serious: Yes (Disabling, Congenital Anomaly, Other)
  Sender: FDA-Public Use
  Company Number: PHHY2014US082810

PATIENT
  Sex: Male

DRUGS (1)
  1. METFORMIN [Suspect]
     Active Substance: METFORMIN HYDROCHLORIDE
     Route: 064

REACTIONS (15)
  - Palatal disorder [Unknown]
  - Prominent epicanthal folds [Unknown]
  - Quadriplegia [Unknown]
  - Cranial nerve palsies multiple [Unknown]
  - Glossoptosis [Unknown]
  - Microgenia [Unknown]
  - Limb hypoplasia congenital [Unknown]
  - Hypoglossal nerve disorder [Unknown]
  - Microstomia [Unknown]
  - Respiratory disorder neonatal [Unknown]
  - Premature baby [Unknown]
  - Hypotonia neonatal [Unknown]
  - Foetal exposure during pregnancy [Unknown]
  - Congenital bowing of long bones [Unknown]
  - Apnoea neonatal [Unknown]
